FAERS Safety Report 17622512 (Version 1)
Quarter: 2020Q2

REPORT INFORMATION
  Report Type: Spontaneous
  Country: US (occurrence: US)
  Receive Date: 20200402
  Receipt Date: 20200402
  Transmission Date: 20200713
  Serious: No
  Sender: FDA-Public Use
  Company Number: None

PATIENT
  Age: 64 Year
  Sex: Female

DRUGS (1)
  1. PULMOZYME [Suspect]
     Active Substance: DORNASE ALFA
     Dosage: ?          OTHER DOSE:2.5MG/2.5ML;OTHER FREQUENCY:UNKNOWN;?
     Route: 055
     Dates: start: 201009

REACTIONS (8)
  - Hyperhidrosis [None]
  - Pruritus [None]
  - Pneumonia [None]
  - Cough [None]
  - Feeling hot [None]
  - Headache [None]
  - Insomnia [None]
  - Throat irritation [None]

NARRATIVE: CASE EVENT DATE: 20200203
